FAERS Safety Report 6290623-X (Version None)
Quarter: 2009Q3

REPORT INFORMATION
  Report Type: 
  Country: None (occurrence: None)
  Receive Date: 20090727
  Receipt Date: 20080821
  Transmission Date: 20100115
  Serious: Yes (Other)
  Sender: FDA-Public Use
  Company Number: OMPQ-PR-0808S-0689

PATIENT
  Age: 49 Year
  Sex: Female
  Weight: 68.0396 kg

DRUGS (3)
  1. OMNIPAQUE 300 [Suspect]
     Indication: ABDOMINAL PAIN
     Dosage: SINGLE DOSE, P.O.
     Route: 048
     Dates: start: 20080716, end: 20080716
  2. OMNIPAQUE 300 [Suspect]
     Indication: FREQUENT BOWEL MOVEMENTS
     Dosage: SINGLE DOSE, P.O.
     Route: 048
     Dates: start: 20080716, end: 20080716
  3. ULTRAVIST 150 [Concomitant]

REACTIONS (1)
  - HYPERSENSITIVITY [None]
